FAERS Safety Report 14590786 (Version 1)
Quarter: 2018Q1

REPORT INFORMATION
  Report Type: Report from Study
  Country: DE (occurrence: DE)
  Receive Date: 20180302
  Receipt Date: 20180302
  Transmission Date: 20180509
  Serious: Yes (Other)
  Sender: FDA-Public Use
  Company Number: DE-BAYER-2017-122975

PATIENT
  Age: 48 Year
  Sex: Female

DRUGS (2)
  1. EDOXABAN [Concomitant]
     Active Substance: EDOXABAN TOSYLATE
     Dosage: UNK
  2. BETAFERON [Suspect]
     Active Substance: INTERFERON BETA-1B
     Indication: MULTIPLE SCLEROSIS
     Dosage: 250 ?G, QOD
     Route: 058
     Dates: start: 19970101

REACTIONS (3)
  - Influenza like illness [Not Recovered/Not Resolved]
  - Arrhythmia [Not Recovered/Not Resolved]
  - Injection site reaction [Recovering/Resolving]

NARRATIVE: CASE EVENT DATE: 20171026
